FAERS Safety Report 7519724-2 (Version None)
Quarter: 2011Q2

REPORT INFORMATION
  Report Type: 
  Country: None (occurrence: None)
  Receive Date: 20110602
  Receipt Date: 20110601
  Transmission Date: 20111010
  Serious: Yes (Death, Hospitalization, Other)
  Sender: FDA-Public Use
  Company Number: AU-PFIZER INC-2011067539

PATIENT
  Age: 67 Year
  Sex: Female
  Weight: 108 kg

DRUGS (3)
  1. PARACETAMOL [Concomitant]
     Indication: OSTEOARTHRITIS
     Dosage: 1330 MG, 3X/DAY
     Route: 048
  2. CELEBREX [Suspect]
     Indication: OSTEOARTHRITIS
     Dosage: 200 MG, 1X/DAY
     Route: 048
     Dates: start: 20110216, end: 20110314
  3. GLUCOSAMINE [Concomitant]
     Indication: OSTEOARTHRITIS
     Dosage: 1000 MG, 1X/DAY
     Route: 048

REACTIONS (7)
  - DISSEMINATED INTRAVASCULAR COAGULATION [None]
  - VOMITING [None]
  - PEPTIC ULCER PERFORATION [None]
  - LOSS OF CONSCIOUSNESS [None]
  - DECREASED APPETITE [None]
  - MULTI-ORGAN FAILURE [None]
  - NAUSEA [None]
